FAERS Safety Report 18410268 (Version 1)
Quarter: 2020Q4

REPORT INFORMATION
  Report Type: Spontaneous
  Country: ES (occurrence: ES)
  Receive Date: 20201021
  Receipt Date: 20201021
  Transmission Date: 20210114
  Serious: Yes (Life-Threatening, Hospitalization)
  Sender: FDA-Public Use
  Company Number: ES-MYLANLABS-2020M1088153

PATIENT
  Sex: Male

DRUGS (12)
  1. SILDENAFIL. [Suspect]
     Active Substance: SILDENAFIL
     Indication: PATENT DUCTUS ARTERIOSUS
  2. NOREPINEPHRINE. [Suspect]
     Active Substance: NOREPINEPHRINE
     Indication: NEWBORN PERSISTENT PULMONARY HYPERTENSION
     Dosage: 0.8 MICROGRAM/KILOGRAMNOREPINEPHRINE (UP TO 0.8..
     Route: 065
  3. EPOPROSTENOL. [Concomitant]
     Active Substance: EPOPROSTENOL
     Indication: SHOCK
     Dosage: CONTINUOUS EPOPROSTENOL INFUSION
  4. DOBUTAMINE [Suspect]
     Active Substance: DOBUTAMINE HYDROCHLORIDE
     Indication: HYPOTENSION
     Dosage: UNK
     Route: 065
  5. SILDENAFIL. [Suspect]
     Active Substance: SILDENAFIL
     Indication: SHOCK
     Dosage: UNK
     Route: 065
  6. ALPROSTADIL. [Suspect]
     Active Substance: ALPROSTADIL
     Indication: PATENT DUCTUS ARTERIOSUS
  7. EPINEPHRINE. [Suspect]
     Active Substance: EPINEPHRINE
     Indication: NEWBORN PERSISTENT PULMONARY HYPERTENSION
     Dosage: 0.8 MICROGRAM/KILOGRAM EPINEPHRIN..
     Route: 065
  8. HYDROCORTISONE. [Suspect]
     Active Substance: HYDROCORTISONE
     Indication: NEWBORN PERSISTENT PULMONARY HYPERTENSION
     Dosage: 1 MILLIGRAM/KILOGRAM, Q6H HYDROCORTISONE (1MG/KG/6H)
     Route: 065
  9. ALPROSTADIL. [Suspect]
     Active Substance: ALPROSTADIL
     Indication: SHOCK
     Dosage: INFUSION
  10. EPOPROSTENOL. [Concomitant]
     Active Substance: EPOPROSTENOL
     Indication: CARDIAC FAILURE
     Dosage: 60 NANOGRAM DOSE ESCALATED..
  11. BOSENTAN. [Suspect]
     Active Substance: BOSENTAN
     Indication: NEWBORN PERSISTENT PULMONARY HYPERTENSION
     Dosage: 2 MILLIGRAM/KILOGRAM, BID BOSENTAN (2MG/KG/12H)
     Route: 065
  12. DOPAMINE [Suspect]
     Active Substance: DOPAMINE HYDROCHLORIDE
     Indication: HYPOTENSION
     Dosage: UNK
     Route: 065

REACTIONS (2)
  - Treatment failure [Unknown]
  - Off label use [Unknown]
